FAERS Safety Report 9698047 (Version 5)
Quarter: 2015Q1

REPORT INFORMATION
  Report Type: Spontaneous
  Country: US (occurrence: US)
  Receive Date: 20131120
  Receipt Date: 20150327
  Transmission Date: 20150721
  Serious: Yes (Life-Threatening, Hospitalization, Other)
  Sender: FDA-Public Use
  Company Number: US-BAYER-2013-139470

PATIENT
  Age: 39 Year
  Sex: Female

DRUGS (5)
  1. CELEXA [Concomitant]
     Active Substance: CITALOPRAM HYDROBROMIDE
     Dosage: 40 MG TABLET 1
     Route: 048
     Dates: start: 20130411
  2. XANAX [Concomitant]
     Active Substance: ALPRAZOLAM
     Dosage: 0.5 MG, 1 TABLET
     Route: 048
     Dates: start: 20130411
  3. AZITHROMYCIN [Concomitant]
     Active Substance: AZITHROMYCIN ANHYDROUS
     Dosage: 250 MG, 6 TABLETS
     Dates: start: 20130328
  4. MIRENA [Suspect]
     Active Substance: LEVONORGESTREL
     Indication: CONTRACEPTION
     Dosage: 20 MCG/24HR, CONT
     Route: 015
     Dates: start: 20100426, end: 20130411
  5. DEPAKOTE [Concomitant]
     Active Substance: DIVALPROEX SODIUM
     Dosage: 1000 MG, BID
     Route: 048
     Dates: start: 20130411

REACTIONS (18)
  - Genital haemorrhage [None]
  - Emotional distress [None]
  - Menorrhagia [None]
  - Abdominal pain lower [None]
  - Device difficult to use [None]
  - Embedded device [None]
  - Abdominal pain [None]
  - Device dislocation [None]
  - Anhedonia [None]
  - Injury [None]
  - Back pain [None]
  - Infection [None]
  - Medical device pain [None]
  - Device difficult to use [None]
  - Fallopian tube neoplasm [None]
  - General physical health deterioration [None]
  - Anxiety [None]
  - Genital pain [None]

NARRATIVE: CASE EVENT DATE: 2010
